FAERS Safety Report 23692380 (Version 5)
Quarter: 2024Q4

REPORT INFORMATION
  Report Type: Report from Study
  Country: US (occurrence: US)
  Receive Date: 20240401
  Receipt Date: 20241204
  Transmission Date: 20250115
  Serious: Yes (Life-Threatening, Hospitalization, Other)
  Sender: PFIZER
  Company Number: US-PFIZER INC-202200502824

PATIENT
  Age: 50 Year
  Sex: Male
  Weight: 100.5 kg

DRUGS (19)
  1. INLYTA [Suspect]
     Active Substance: AXITINIB
     Indication: Clear cell renal cell carcinoma
     Dosage: TAKE 1 TABLET EVERY 12 HOURS WITH PLENTY OF WATER NOTIFY PROVIDER OF ANY TOXICITIES
     Route: 048
     Dates: start: 20190813
  2. INLYTA [Suspect]
     Active Substance: AXITINIB
     Dosage: TAKE TWO 1 MG TABLETS WITH ONE 5 MG TABLET FOR A TOTAL DOSE OF 7 MG
     Route: 048
     Dates: start: 20191011, end: 20221218
  3. INLYTA [Suspect]
     Active Substance: AXITINIB
     Dosage: 7 MG, 2X/DAY
     Route: 048
     Dates: start: 20230102
  4. INLYTA [Suspect]
     Active Substance: AXITINIB
     Dosage: TAKE 1 TABLET EVERY 12 HOURS WITH PLENTY OF WATER
     Route: 048
     Dates: end: 20240223
  5. INLYTA [Suspect]
     Active Substance: AXITINIB
     Dosage: TAKE 1 TABLET EVERY 12 HOURS WITH A FULL GLASS (8 OZ) WATER
     Route: 048
     Dates: start: 20240303
  6. ASPIRIN [Concomitant]
     Active Substance: ASPIRIN
     Indication: Coronary artery disease
     Dosage: 1 TABLET EVERY DAY
     Route: 048
  7. BRILINTA [Concomitant]
     Active Substance: TICAGRELOR
     Indication: Percutaneous coronary intervention
     Dosage: UNK
  8. BRILINTA [Concomitant]
     Active Substance: TICAGRELOR
     Dosage: TAKE 1 TABLET 2 TIMES EVERY DAY
     Route: 048
  9. BRILINTA [Concomitant]
     Active Substance: TICAGRELOR
     Dosage: 60 MG
  10. CANDESARTAN [Concomitant]
     Active Substance: CANDESARTAN
     Dosage: UNK
  11. CARVEDILOL [Concomitant]
     Active Substance: CARVEDILOL
     Dosage: TAKE 1 TABLET 2 TIMES EVERY DAY WITH FOOD
     Route: 048
  12. ROSUVASTATIN [Concomitant]
     Active Substance: ROSUVASTATIN
     Indication: Hyperlipidaemia
     Dosage: TAKE 1 TABLET EVERY DAY
     Route: 048
  13. ROSUVASTATIN [Concomitant]
     Active Substance: ROSUVASTATIN
     Dosage: TAKE ONE TABLET DAILY
     Route: 048
  14. ENTRESTO [Concomitant]
     Active Substance: SACUBITRIL\VALSARTAN
     Dosage: TAKE ONE TABLET TWO TIMES A DAY
     Route: 048
  15. METOPROLOL SUCCINATE [Concomitant]
     Active Substance: METOPROLOL SUCCINATE
     Dosage: TAKE ONE-HALF TABLET DAILY MOVE UP TO TAKE ONE TABLET DAILY AS REPORTED
     Route: 048
  16. AMLODIPINE [Concomitant]
     Active Substance: AMLODIPINE BESYLATE
     Dosage: 5 MG, DAILY
     Route: 048
  17. ASPIRIN [Concomitant]
     Active Substance: ASPIRIN
     Dosage: 1 TABLET EVERY DAY
     Route: 048
  18. ATACAND [Concomitant]
     Active Substance: CANDESARTAN CILEXETIL
     Indication: Blood pressure abnormal
     Dosage: UNK
  19. SACUBITRIL\VALSARTAN [Concomitant]
     Active Substance: SACUBITRIL\VALSARTAN
     Dosage: TAKE ONE TABLET TWO TIMES A DAY
     Route: 048

REACTIONS (14)
  - Acute myocardial infarction [Recovering/Resolving]
  - Myocardial infarction [Unknown]
  - Product dose omission in error [Unknown]
  - Product dose omission issue [Unknown]
  - Intentional product misuse [Unknown]
  - Alanine aminotransferase increased [Recovered/Resolved]
  - Hepatic enzyme increased [Unknown]
  - Liver function test increased [Recovered/Resolved]
  - Diarrhoea [Recovered/Resolved]
  - Dizziness [Unknown]
  - Oropharyngeal pain [Not Recovered/Not Resolved]
  - Dysphonia [Not Recovered/Not Resolved]
  - Memory impairment [Unknown]
  - Discomfort [Recovered/Resolved]

NARRATIVE: CASE EVENT DATE: 20220101
